FAERS Safety Report 12824814 (Version 1)
Quarter: 2016Q4

REPORT INFORMATION
  Report Type: Spontaneous
  Country: GB (occurrence: GB)
  Receive Date: 20161007
  Receipt Date: 20161007
  Transmission Date: 20170207
  Serious: Yes (Other)
  Sender: FDA-Public Use
  Company Number: GB-TEVA-699466ACC

PATIENT
  Age: 72 Year
  Sex: Female

DRUGS (1)
  1. ACETAZOLAMIDE. [Suspect]
     Active Substance: ACETAZOLAMIDE
     Indication: INTRAOCULAR PRESSURE INCREASED
     Route: 048
     Dates: start: 20160913

REACTIONS (2)
  - Deafness unilateral [Not Recovered/Not Resolved]
  - Documented hypersensitivity to administered product [Unknown]

NARRATIVE: CASE EVENT DATE: 20160913
